FAERS Safety Report 13636659 (Version 1)
Quarter: 2017Q2

REPORT INFORMATION
  Report Type: Spontaneous
  Country: US (occurrence: US)
  Receive Date: 20170531
  Receipt Date: 20170531
  Transmission Date: 20170830
  Serious: No
  Sender: FDA-Public Use
  Company Number: US-ASTELLAS-1840527

PATIENT
  Sex: Male
  Weight: 63.56 kg

DRUGS (1)
  1. TARCEVA [Suspect]
     Active Substance: ERLOTINIB HYDROCHLORIDE
     Indication: LUNG NEOPLASM MALIGNANT
     Dosage: 1 TABLET DAILY FOR 1 WEEK THEN INCREASE BY 25 MG WEEKLY UPTO MAXIMUM DOSE OF 150MG.
     Route: 048
     Dates: start: 20160819

REACTIONS (4)
  - Rash [Unknown]
  - Rash [Not Recovered/Not Resolved]
  - Nausea [Unknown]
  - Diarrhoea [Not Recovered/Not Resolved]
